FAERS Safety Report 13839218 (Version 2)
Quarter: 2018Q1

REPORT INFORMATION
  Report Type: Spontaneous
  Country: AR (occurrence: AR)
  Receive Date: 20170807
  Receipt Date: 20180201
  Transmission Date: 20180508
  Serious: Yes (Death, Hospitalization, Other)
  Sender: FDA-Public Use
  Company Number: AR-BAYER-2017-145070

PATIENT
  Sex: Male

DRUGS (2)
  1. REGORAFENIB [Suspect]
     Active Substance: REGORAFENIB
     Indication: COLORECTAL CANCER METASTATIC
     Dosage: 120 MG, UNK
     Dates: start: 201607
  2. DEXAMETHASONE. [Concomitant]
     Active Substance: DEXAMETHASONE
     Indication: PROPHYLAXIS

REACTIONS (15)
  - Metastases to lung [Unknown]
  - Vomiting [Unknown]
  - General physical health deterioration [Unknown]
  - Nausea [Unknown]
  - Colorectal cancer metastatic [Fatal]
  - Dyspnoea [Unknown]
  - Pain [Unknown]
  - Oedema peripheral [Unknown]
  - Toxicity to various agents [Unknown]
  - Hypoalbuminaemia [Unknown]
  - Weight decreased [Unknown]
  - Stomatitis [Unknown]
  - Asthenia [Unknown]
  - Metastases to lymph nodes [Unknown]
  - Drug ineffective [None]

NARRATIVE: CASE EVENT DATE: 2016
